FAERS Safety Report 6235366-3 (Version None)
Quarter: 2009Q2

REPORT INFORMATION
  Report Type: 
  Country: None (occurrence: None)
  Receive Date: 20090618
  Receipt Date: 20080624
  Transmission Date: 20091009
  Serious: No
  Sender: FDA-Public Use
  Company Number: US-ASTRAZENECA-2007UW16071

PATIENT
  Age: 63 Year
  Sex: Female
  Weight: 54.4 kg

DRUGS (8)
  1. ENTOCORT EC [Suspect]
     Indication: COLITIS ULCERATIVE
     Route: 048
  2. ENTOCORT EC [Suspect]
     Indication: CROHN'S DISEASE
     Route: 048
  3. ENTOCORT EC [Suspect]
     Route: 048
  4. ENTOCORT EC [Suspect]
     Route: 048
  5. SIMETHICONE [Concomitant]
  6. CALCIUM [Concomitant]
  7. PAIN RELIEVERS [Concomitant]
  8. PREMARIN [Concomitant]

REACTIONS (8)
  - ABDOMINAL DISTENSION [None]
  - ABDOMINAL PAIN [None]
  - DIARRHOEA [None]
  - EAR INFECTION [None]
  - FLATULENCE [None]
  - HEPATIC ENZYME INCREASED [None]
  - NASOPHARYNGITIS [None]
  - THERAPEUTIC RESPONSE UNEXPECTED [None]
